FAERS Safety Report 16664200 (Version 1)
Quarter: 2019Q3

REPORT INFORMATION
  Report Type: Spontaneous
  Country: US (occurrence: US)
  Receive Date: 20190802
  Receipt Date: 20190802
  Transmission Date: 20191004
  Serious: Yes (Hospitalization)
  Sender: FDA-Public Use
  Company Number: US-ASTRAZENECA-2019SF07348

PATIENT
  Age: 906 Month
  Sex: Female

DRUGS (12)
  1. ENALAPRIL [Concomitant]
     Active Substance: ENALAPRIL
  2. SERTRALINE [Concomitant]
     Active Substance: SERTRALINE HYDROCHLORIDE
  3. ATENOLOL. [Suspect]
     Active Substance: ATENOLOL
     Route: 048
  4. METFORMIN [Concomitant]
     Active Substance: METFORMIN HYDROCHLORIDE
  5. BYETTA [Suspect]
     Active Substance: EXENATIDE
     Route: 065
  6. ATORVASTATIN [Concomitant]
     Active Substance: ATORVASTATIN
  7. INSULIN [Concomitant]
     Active Substance: INSULIN NOS
  8. DICLOFENAC [Concomitant]
     Active Substance: DICLOFENAC
  9. LYRICA [Suspect]
     Active Substance: PREGABALIN
     Indication: NEUROPATHY PERIPHERAL
     Route: 048
     Dates: start: 201808, end: 201901
  10. INSULIN [Concomitant]
     Active Substance: INSULIN NOS
  11. FUROSEMIDE. [Concomitant]
     Active Substance: FUROSEMIDE
  12. LYRICA [Suspect]
     Active Substance: PREGABALIN
     Indication: NECK PAIN
     Route: 048
     Dates: start: 201808, end: 201901

REACTIONS (4)
  - Drug hypersensitivity [Unknown]
  - Syncope [Recovered/Resolved]
  - Diarrhoea [Unknown]
  - Dizziness [Recovered/Resolved]

NARRATIVE: CASE EVENT DATE: 201901
